FAERS Safety Report 10735464 (Version 1)
Quarter: 2015Q1

REPORT INFORMATION
  Report Type: Spontaneous
  Country: FR (occurrence: FR)
  Receive Date: 20150126
  Receipt Date: 20150126
  Transmission Date: 20150721
  Serious: Yes (Hospitalization)
  Sender: FDA-Public Use
  Company Number: FR-009507513-1501FRA008746

PATIENT
  Age: 82 Year
  Sex: Male

DRUGS (9)
  1. EUPANTOL [Concomitant]
     Active Substance: PANTOPRAZOLE SODIUM
     Dosage: 20 MG, DAILY
  2. TARDYFERON [Concomitant]
     Active Substance: FERROUS SULFATE\FOLIC ACID
  3. LASILIX [Concomitant]
     Active Substance: FUROSEMIDE
     Dosage: 40 MG, DAILY
  4. TRIATEC (RAMIPRIL) [Concomitant]
     Active Substance: RAMIPRIL
     Dosage: 5 MG, DAILY
  5. NEBIVOLOL [Concomitant]
     Active Substance: NEBIVOLOL
     Dosage: 2.5 MG, DAILY
  6. KARDEGIC [Concomitant]
     Active Substance: ASPIRIN LYSINE
     Dosage: 75 MG, DAILY
  7. TRIFLUCAN [Suspect]
     Active Substance: FLUCONAZOLE
     Indication: FUNGAL OESOPHAGITIS
     Dosage: 50 MG, TID
     Route: 048
     Dates: start: 20141027, end: 20141204
  8. ZOCOR [Suspect]
     Active Substance: SIMVASTATIN
     Dosage: 40 MG DAILY
     Route: 048
     Dates: end: 20141216
  9. DIAMICRON [Concomitant]
     Active Substance: GLICLAZIDE
     Dosage: 2 DF, DAILY

REACTIONS (2)
  - Hepatocellular injury [Recovered/Resolved]
  - Rhabdomyolysis [Recovered/Resolved]

NARRATIVE: CASE EVENT DATE: 201411
